FAERS Safety Report 6304420-X (Version None)
Quarter: 2009Q3

REPORT INFORMATION
  Report Type: 
  Country: None (occurrence: None)
  Receive Date: 20090811
  Receipt Date: 20090731
  Transmission Date: 20100115
  Serious: Yes (Hospitalization, Disabling)
  Sender: FDA-Public Use
  Company Number: PHHY2009JP24027

PATIENT
  Sex: Female

DRUGS (11)
  1. ZOMETA [Suspect]
     Indication: METASTASES TO BONE
     Dosage: 4 MG PER DAY
     Route: 042
     Dates: start: 20080709, end: 20080709
  2. ZOMETA [Suspect]
     Dosage: 4 MG PER DAY
     Dates: start: 20080908, end: 20080908
  3. ZOMETA [Suspect]
     Dosage: 4 MG PER DAY
     Dates: start: 20081006, end: 20081006
  4. ZOMETA [Suspect]
     Dosage: 4 MG PER DAY
     Route: 042
     Dates: start: 20081104, end: 20081104
  5. ZOMETA [Suspect]
     Dosage: 4 MG PER DAY
     Route: 042
     Dates: start: 20081201, end: 20081201
  6. ZOMETA [Suspect]
     Dosage: 4 MG PER DAY
     Route: 042
     Dates: start: 20081222, end: 20081222
  7. ZOMETA [Suspect]
     Dosage: 4 MG PER DAY
     Route: 042
     Dates: start: 20090119, end: 20090119
  8. ZOMETA [Suspect]
     Dosage: 4 MG PER DAY
     Route: 042
     Dates: start: 20090216, end: 20090216
  9. LOXONIN [Concomitant]
     Route: 048
  10. CEFMETAZON [Concomitant]
     Dosage: 2 MG PER DAY
     Dates: start: 20090325, end: 20090401
  11. MEROPEN [Concomitant]
     Dosage: 1 MG PER DAY
     Dates: start: 20090402, end: 20090406

REACTIONS (10)
  - ABSCESS [None]
  - DYSPHAGIA [None]
  - INCISIONAL DRAINAGE [None]
  - OSTEOMYELITIS [None]
  - OSTEONECROSIS [None]
  - PURULENT DISCHARGE [None]
  - SWELLING [None]
  - TOOTH ABSCESS [None]
  - TOOTH EXTRACTION [None]
  - TOOTHACHE [None]
